FAERS Safety Report 8778449 (Version 2)
Quarter: 2013Q1

REPORT INFORMATION
  Report Type: Spontaneous
  Country: GB (occurrence: GB)
  Receive Date: 20120911
  Receipt Date: 20130215
  Transmission Date: 20140127
  Serious: Yes (Other)
  Sender: FDA-Public Use
  Company Number: GB-BIOGENIDEC-2012BI036253

PATIENT
  Age: 16 Year
  Sex: Female

DRUGS (1)
  1. TYSABRI [Suspect]
     Indication: MULTIPLE SCLEROSIS
     Route: 042
     Dates: start: 201010

REACTIONS (6)
  - Hypoaesthesia [Recovered/Resolved]
  - Brain stem syndrome [Recovered/Resolved]
  - Optic atrophy [Not Recovered/Not Resolved]
  - Blindness [Recovered/Resolved]
  - Urinary retention [Recovered/Resolved]
  - Neuromyelitis optica [Unknown]
